FAERS Safety Report 5806763-2 (Version None)
Quarter: 2008Q3

REPORT INFORMATION
  Report Type: 
  Country: None (occurrence: None)
  Receive Date: 20080709
  Receipt Date: 20080709
  Transmission Date: 20090109
  Serious: Yes (Hospitalization)
  Sender: FDA-Public Use
  Company Number: None

PATIENT
  Age: 82 Year
  Sex: Female

DRUGS (1)
  1. DIGITEK 125MCG AMIDE (BERTEK) [Suspect]
     Dosage: TAKE 1 TABLETS DAILY ALTERNATING WITH 2 TABLETS THE NEXT DAY

REACTIONS (1)
  - HEART RATE DECREASED [None]
